FAERS Safety Report 11911452 (Version 3)
Quarter: 2016Q1

REPORT INFORMATION
  Report Type: Spontaneous
  Country: JP (occurrence: JP)
  Receive Date: 20160112
  Receipt Date: 20160310
  Transmission Date: 20160526
  Serious: Yes (Hospitalization)
  Sender: FDA-Public Use
  Company Number: JP-EISAI MEDICAL RESEARCH-EC-2015-013167

PATIENT
  Age: 61 Year
  Sex: Female

DRUGS (6)
  1. HALAVEN [Suspect]
     Active Substance: ERIBULIN MESYLATE
     Indication: BREAST CANCER RECURRENT
     Dosage: 2 MG/BODY
     Route: 041
     Dates: start: 20150904, end: 20151124
  2. HALAVEN [Suspect]
     Active Substance: ERIBULIN MESYLATE
     Dosage: 2 MG/BODY
     Route: 041
     Dates: start: 20151210, end: 20151217
  3. HALAVEN [Suspect]
     Active Substance: ERIBULIN MESYLATE
     Route: 041
     Dates: start: 20160204, end: 20160204
  4. HALAVEN [Suspect]
     Active Substance: ERIBULIN MESYLATE
     Route: 041
     Dates: start: 20160225
  5. HALAVEN [Suspect]
     Active Substance: ERIBULIN MESYLATE
     Route: 041
     Dates: start: 20160107, end: 20160128
  6. HALAVEN [Suspect]
     Active Substance: ERIBULIN MESYLATE
     Route: 041
     Dates: start: 20160218, end: 20160218

REACTIONS (4)
  - Cystitis haemorrhagic [Recovered/Resolved]
  - Neuropathy peripheral [Not Recovered/Not Resolved]
  - Feeling cold [Unknown]
  - Dysgeusia [Unknown]

NARRATIVE: CASE EVENT DATE: 20151006
